APPROVED DRUG PRODUCT: ARGATROBAN
Active Ingredient: ARGATROBAN
Strength: 50MG/50ML (1MG/ML)
Dosage Form/Route: INJECTABLE;INJECTION
Application: N203049 | Product #002 | TE Code: AP
Applicant: HIKMA PHARM CO LTD
Approved: Sep 30, 2016 | RLD: Yes | RS: Yes | Type: RX